FAERS Safety Report 8359570-3 (Version None)
Quarter: 2012Q2

REPORT INFORMATION
  Report Type: 
  Country: None (occurrence: None)
  Receive Date: 20120515
  Receipt Date: 20120508
  Transmission Date: 20120825
  Serious: Yes (Other)
  Sender: FDA-Public Use
  Company Number: US-ELI_LILLY_AND_COMPANY-US201202007492

PATIENT
  Sex: Female

DRUGS (3)
  1. HUMALOG [Suspect]
     Indication: DIABETES MELLITUS
     Dosage: 2 TO 3 U, WITH EACH MEAL
  2. HUMALOG [Suspect]
     Dosage: 2 TO 3 U, WITH EACH MEAL
  3. LANTUS [Concomitant]
     Dosage: UNK, AT NIGHT

REACTIONS (5)
  - DIALYSIS [None]
  - MALAISE [None]
  - DRUG DOSE OMISSION [None]
  - BLOOD GLUCOSE INCREASED [None]
  - FATIGUE [None]
